FAERS Safety Report 4767822-9 (Version None)
Quarter: 2005Q3

REPORT INFORMATION
  Report Type: 
  Country: None (occurrence: None)
  Receive Date: 20050912
  Receipt Date: 20050829
  Transmission Date: 20060218
  Serious: Yes (Other)
  Sender: FDA-Public Use
  Company Number: 2004093169

PATIENT
  Age: 55 Year
  Sex: Male
  Weight: 83.9154 kg

DRUGS (11)
  1. GEODON [Suspect]
     Indication: BIPOLAR DISORDER
     Dosage: 80 MG (40 MG, 2 IN 1 D), ORAL
     Route: 048
     Dates: start: 20040101
  2. LITHIUM CARBONATE [Suspect]
     Indication: BIPOLAR DISORDER
     Dosage: ORAL
     Route: 048
  3. DIAZEPAM [Concomitant]
  4. TRIPLEPTAL (OXCARBAZEPINE) [Concomitant]
  5. GLUCOPHAGE [Concomitant]
  6. GLUCOTROL XL (GILIPIZIDE) [Concomitant]
  7. PROTONX (PANTOPRAZOLE) [Concomitant]
  8. TRIHEXYPHENIDYL HCL [Concomitant]
  9. KEMADRIN [Concomitant]
  10. HUMULIN (INSULIN HUMAN, INSULIN ISOPHANE, HUMAN BIOSYNTHETIC) [Concomitant]
  11. CARTIA (ACETYSLALICYLIC ACID) [Concomitant]

REACTIONS (15)
  - BRUXISM [None]
  - CONDITION AGGRAVATED [None]
  - CONFUSIONAL STATE [None]
  - DIABETES MELLITUS [None]
  - DYSPHASIA [None]
  - FATIGUE [None]
  - HYPONATRAEMIA [None]
  - KETOACIDOSIS [None]
  - LOSS OF CONSCIOUSNESS [None]
  - NO THERAPEUTIC RESPONSE [None]
  - ROAD TRAFFIC ACCIDENT [None]
  - SOMNOLENCE [None]
  - TONGUE DISORDER [None]
  - TREMOR [None]
  - UNDERDOSE [None]
